FAERS Safety Report 7048250-2 (Version None)
Quarter: 2010Q4

REPORT INFORMATION
  Report Type: 
  Country: None (occurrence: None)
  Receive Date: 20101015
  Receipt Date: 20101006
  Transmission Date: 20110411
  Serious: Yes (Hospitalization, Disabling)
  Sender: FDA-Public Use
  Company Number: PL-ABBOTT-10P-129-0676243-00

PATIENT
  Sex: Male
  Weight: 116 kg

DRUGS (5)
  1. MERIDIA [Suspect]
     Indication: OBESITY
     Route: 048
     Dates: start: 20060401, end: 20080301
  2. ZELIXA (SIBUTRAMINE) NON ABBOTT [Suspect]
     Indication: OBESITY
     Route: 048
     Dates: start: 20090101, end: 20091201
  3. MILURIT [Concomitant]
     Indication: GOUT
     Dosage: 300 MG DAILY
     Route: 048
     Dates: start: 20070101
  4. CARVEDILOL [Concomitant]
     Indication: CONGESTIVE CARDIOMYOPATHY
     Dosage: 300 MG DAILY
     Route: 048
     Dates: start: 20060101
  5. SIMVASTATIN [Concomitant]
     Indication: HYPERCHOLESTEROLAEMIA
     Dosage: 20 MG DAILY
     Route: 048
     Dates: start: 20060101

REACTIONS (2)
  - INTERSTITIAL LUNG DISEASE [None]
  - RENAL FAILURE CHRONIC [None]
